FAERS Safety Report 8767274 (Version 2)
Quarter: 2012Q4

REPORT INFORMATION
  Report Type: 
  Country: JP (occurrence: JP)
  Receive Date: 20120904
  Receipt Date: 20121031
  Transmission Date: 20130627
  Serious: Yes (Other)
  Sender: FDA-Public Use
  Company Number: PHHY2012JP075821

PATIENT

DRUGS (1)
  1. NEORAL [Suspect]
     Route: 048

REACTIONS (6)
  - Shock [Unknown]
  - Cold sweat [Unknown]
  - Body temperature decreased [Unknown]
  - Pyrexia [Unknown]
  - Somnolence [Recovered/Resolved]
  - Malaise [Recovered/Resolved]
